FAERS Safety Report 9689274 (Version 1)
Quarter: 2013Q4

REPORT INFORMATION
  Report Type: Report from Study
  Country: US (occurrence: US)
  Receive Date: 20131114
  Receipt Date: 20131114
  Transmission Date: 20140711
  Serious: Yes (Other)
  Sender: FDA-Public Use
  Company Number: US-ABBVIE-13P-163-1166718-00

PATIENT
  Sex: Male
  Weight: 90.8 kg

DRUGS (16)
  1. HUMIRA [Suspect]
     Indication: PSORIATIC ARTHROPATHY
     Dates: start: 2008, end: 201211
  2. HUMIRA [Suspect]
     Dates: start: 201308
  3. CYTOXAN [Suspect]
     Indication: NEPHROPATHY
  4. ALLOPURINOL [Concomitant]
     Indication: BLOOD URIC ACID
  5. AMLODIPINE [Concomitant]
     Indication: HYPERTENSION
  6. CARVEDIOLOL [Concomitant]
     Indication: CARDIAC DISORDER
  7. FUROSEMIDE [Concomitant]
     Indication: JOINT SWELLING
  8. FUROSEMIDE [Concomitant]
     Indication: LOCAL SWELLING
  9. METOLAZONE [Concomitant]
     Indication: SWELLING
  10. MULTIVITAMIN [Concomitant]
     Indication: VITAMIN SUPPLEMENTATION
  11. NEXIUM [Concomitant]
     Indication: GASTRIC DISORDER
  12. NEXIUM [Concomitant]
     Indication: PROPHYLAXIS
  13. SIMVASTATIN [Concomitant]
     Indication: BLOOD CHOLESTEROL INCREASED
  14. VITAMIN D3 [Concomitant]
     Indication: VITAMIN SUPPLEMENTATION
  15. WARFARIN [Concomitant]
     Indication: ATRIAL FIBRILLATION
  16. OXYCODONE [Concomitant]
     Indication: HEADACHE

REACTIONS (5)
  - Nephropathy [Recovering/Resolving]
  - Blood creatinine increased [Recovering/Resolving]
  - Blood urea increased [Recovering/Resolving]
  - Renal failure [Recovering/Resolving]
  - Malaise [Recovered/Resolved]
